FAERS Safety Report 4377253-1 (Version None)
Quarter: 2004Q2

REPORT INFORMATION
  Report Type: 
  Country: None (occurrence: None)
  Receive Date: 20040609
  Receipt Date: 20040310
  Transmission Date: 20050107
  Serious: No
  Sender: FDA-Public Use
  Company Number: 2004203244US

PATIENT
  Age: 24 Year
  Sex: Male

DRUGS (2)
  1. BEXTRA [Suspect]
     Indication: TENDON RUPTURE
     Dosage: 10 MG, EVERY 3 HOURS, UNK
     Dates: start: 20040303, end: 20040310
  2. ASPIRIN [Concomitant]

REACTIONS (1)
  - IRRITABILITY [None]
